FAERS Safety Report 5445105-1 (Version None)
Quarter: 2007Q3

REPORT INFORMATION
  Report Type: 
  Country: None (occurrence: None)
  Receive Date: 20070906
  Receipt Date: 20070827
  Transmission Date: 20080115
  Serious: Yes (Life-Threatening, Other)
  Sender: FDA-Public Use
  Company Number: US-PFIZER INC-2007071661

PATIENT
  Sex: Female
  Weight: 64.4 kg

DRUGS (1)
  1. HALCION [Suspect]
     Indication: SLEEP DISORDER

REACTIONS (1)
  - OVARIAN CANCER [None]
